FAERS Safety Report 8355718-5 (Version None)
Quarter: 2012Q2

REPORT INFORMATION
  Report Type: 
  Country: None (occurrence: None)
  Receive Date: 20120510
  Receipt Date: 20120501
  Transmission Date: 20120825
  Serious: Yes (Other)
  Sender: FDA-Public Use
  Company Number: 2012-2084

PATIENT
  Age: 47 Year
  Sex: Male
  Weight: 136 kg

DRUGS (9)
  1. ZOCOR [Concomitant]
  2. LOW DOSE ASPIRIN (ACETYLSALICYLIC ACID) [Concomitant]
  3. CELEXA [Concomitant]
  4. MORPHINE [Concomitant]
  5. ZESTRIL [Concomitant]
  6. SOMATULINE DEPOT [Suspect]
     Indication: ACROMEGALY
     Dosage: 120 MG (120 MG, 1 IN 28 D),SUBCUTANEOUS
     Route: 058
     Dates: start: 20100101
  7. DOSTINEX [Concomitant]
  8. ROBAXIN [Concomitant]
  9. MIRAPEX [Concomitant]

REACTIONS (2)
  - BLOOD GROWTH HORMONE INCREASED [None]
  - PNEUMONIA [None]
